FAERS Safety Report 6641244-8 (Version None)
Quarter: 2010Q1

REPORT INFORMATION
  Report Type: 
  Country: None (occurrence: None)
  Receive Date: 20100303
  Receipt Date: 20100303
  Transmission Date: 20100710
  Serious: Yes (Other)
  Sender: FDA-Public Use
  Company Number: 649802

PATIENT
  Age: 30 Year
  Sex: Female
  Weight: 46.3 kg

DRUGS (3)
  1. BONIVA [Suspect]
     Indication: OSTEOPOROSIS
     Dosage: 3 MG 1 PER 3 MONTH INTRAVENOUS
     Route: 042
     Dates: start: 20090710
  2. CALCIUM/VITAMIN D (CALCIUM/VITAMIN D NOS) [Concomitant]
  3. FISH OIL (FATTY ACIDS NOS) [Concomitant]

REACTIONS (2)
  - ARTHROPATHY [None]
  - BONE PAIN [None]
